FAERS Safety Report 23175232 (Version 1)
Quarter: 2023Q4

REPORT INFORMATION
  Report Type: Spontaneous
  Country: US (occurrence: US)
  Receive Date: 20231113
  Receipt Date: 20231113
  Transmission Date: 20240110
  Serious: Yes (Other)
  Sender: FDA-Public Use
  Company Number: US-AUROBINDO-AUR-APL-2023-067760

PATIENT
  Age: 65 Year
  Sex: Male

DRUGS (7)
  1. CARFILZOMIB [Suspect]
     Active Substance: CARFILZOMIB
     Indication: Plasma cell myeloma
     Dosage: UNK
     Route: 065
  2. CARFILZOMIB [Suspect]
     Active Substance: CARFILZOMIB
     Indication: Chemotherapy
  3. PREDNISONE [Suspect]
     Active Substance: PREDNISONE
     Indication: Eosinophilic pneumonia
     Dosage: 60 MILLIGRAM
     Route: 065
  4. APIXABAN [Concomitant]
     Active Substance: APIXABAN
     Indication: Pulmonary embolism
  5. DEXAMETHASONE [Concomitant]
     Active Substance: DEXAMETHASONE
     Indication: Chemotherapy
     Dosage: UNK
     Route: 065
  6. DARATUMUMAB [Concomitant]
     Active Substance: DARATUMUMAB
     Indication: Chemotherapy
     Dosage: UNK
     Route: 065
  7. LENALIDOMIDE [Concomitant]
     Active Substance: LENALIDOMIDE
     Indication: Chemotherapy
     Dosage: UNK
     Route: 065

REACTIONS (6)
  - Eosinophilic pneumonia acute [Unknown]
  - Acute respiratory failure [Unknown]
  - Acute respiratory distress syndrome [Unknown]
  - Hypoxia [Unknown]
  - Dyspnoea [Unknown]
  - Drug ineffective [Unknown]
